FAERS Safety Report 25625764 (Version 2)
Quarter: 2025Q3

REPORT INFORMATION
  Report Type: Spontaneous
  Country: US (occurrence: US)
  Receive Date: 20250731
  Receipt Date: 20250811
  Transmission Date: 20251020
  Serious: Yes (Other)
  Sender: AUROBINDO
  Company Number: US-MLMSERVICE-20250715-PI580052-00108-1

PATIENT
  Age: 21 Year
  Sex: Male
  Weight: 113.85 kg

DRUGS (1)
  1. CLOZAPINE [Suspect]
     Active Substance: CLOZAPINE
     Indication: Schizophrenia
     Dosage: 650 MILLIGRAM, ONCE A DAY (TITRATED TO 650 MG/DAY (TROUGH LEVEL: 381 NG/ML) OVER 4 MONTHS)
     Route: 065

REACTIONS (4)
  - Hyperlipidaemia [Recovering/Resolving]
  - Weight increased [Recovered/Resolved]
  - Obstructive sleep apnoea syndrome [Recovered/Resolved]
  - Glycosylated haemoglobin increased [Recovered/Resolved]
